FAERS Safety Report 10420653 (Version 1)
Quarter: 2014Q3

REPORT INFORMATION
  Report Type: Spontaneous
  Country: US (occurrence: None)
  Receive Date: 20140707
  Receipt Date: 20140707
  Transmission Date: 20150326
  Serious: Yes (Other)
  Sender: FDA-Public Use
  Company Number: 1868042

PATIENT
  Age: 23 Year
  Sex: Female
  Weight: 82.7 kg

DRUGS (2)
  1. FENTANYL. [Concomitant]
     Active Substance: FENTANYL
  2. MARCAINE [Suspect]
     Active Substance: BUPIVACAINE HYDROCHLORIDE
     Indication: SPINAL ANAESTHESIA
     Dosage: 1.7 ML MILLILITRE (S) (UNKNOWN) ?INTRADISCAL (INTRASPINAL) ?
     Dates: start: 20130818, end: 20130818

REACTIONS (3)
  - Product formulation issue [None]
  - Drug effect decreased [None]
  - Anxiety [None]

NARRATIVE: CASE EVENT DATE: 20130818
